FAERS Safety Report 10234180 (Version 1)
Quarter: 2014Q2

REPORT INFORMATION
  Report Type: Spontaneous
  Country: DE (occurrence: DE)
  Receive Date: 20140612
  Receipt Date: 20140612
  Transmission Date: 20141212
  Serious: Yes (Hospitalization)
  Sender: FDA-Public Use
  Company Number: DE-GLAXOSMITHKLINE-D0084307A

PATIENT
  Age: 44 Year
  Sex: Male

DRUGS (5)
  1. LAMOTRIGINE [Suspect]
     Dosage: 50MG TWICE PER DAY
     Route: 048
     Dates: end: 20131117
  2. QUETIAPINE [Suspect]
     Dosage: 200MG PER DAY
     Route: 048
     Dates: start: 201305, end: 20131021
  3. RISPERDAL [Suspect]
     Dosage: 2MG TWICE PER DAY
     Route: 048
     Dates: end: 20131024
  4. LEVOMEPROMAZINE [Suspect]
     Dosage: 100MG FOUR TIMES PER DAY
     Route: 048
  5. CARBAMAZEPINE RETARD [Suspect]
     Dosage: 600MG PER DAY
     Route: 048
     Dates: end: 20131124

REACTIONS (3)
  - Thrombocytopenia [Recovering/Resolving]
  - Intentional self-injury [Unknown]
  - Abnormal behaviour [Unknown]
